FAERS Safety Report 20112767 (Version 1)
Quarter: 2021Q4

REPORT INFORMATION
  Report Type: Spontaneous
  Country: IT (occurrence: IT)
  Receive Date: 20211125
  Receipt Date: 20211125
  Transmission Date: 20220303
  Serious: Yes (Life-Threatening)
  Sender: FDA-Public Use
  Company Number: None

PATIENT
  Age: 78 Year
  Sex: Male

DRUGS (3)
  1. KEYTRUDA [Suspect]
     Active Substance: PEMBROLIZUMAB
     Indication: Head and neck cancer
     Dosage: 200 MILLIGRAM, CYCLICAL, POWDER FOR CONCENTRATE FOR SOLUTION FOR INFUSION
     Route: 042
     Dates: start: 20210701, end: 20210928
  2. ELIQUIS [Concomitant]
     Active Substance: APIXABAN
     Indication: Prophylaxis
     Dosage: UNK
  3. LEVOTHYROXINE SODIUM [Concomitant]
     Active Substance: LEVOTHYROXINE SODIUM
     Indication: Hypothyroidism
     Dosage: UNK

REACTIONS (1)
  - Aortic aneurysm [Recovered/Resolved with Sequelae]

NARRATIVE: CASE EVENT DATE: 20211021
